FAERS Safety Report 9428654 (Version 1)
Quarter: 2013Q3

REPORT INFORMATION
  Report Type: Report from Study
  Country: US (occurrence: US)
  Receive Date: 20130730
  Receipt Date: 20130730
  Transmission Date: 20140515
  Serious: No
  Sender: FDA-Public Use
  Company Number: US-ABBOTT-13P-163-1035908-00

PATIENT
  Sex: Male

DRUGS (3)
  1. NIASPAN (COATED) [Suspect]
     Indication: BLOOD CHOLESTEROL INCREASED
     Dosage: 500MGX2 TABS
  2. NIASPAN (COATED) [Suspect]
  3. ASA [Concomitant]
     Indication: PRODUCT USED FOR UNKNOWN INDICATION
     Dosage: AT THE SAME TIME WITH NIASPAN COATED

REACTIONS (1)
  - Flushing [Recovered/Resolved]
